FAERS Safety Report 8306348-2 (Version None)
Quarter: 2012Q2

REPORT INFORMATION
  Report Type: 
  Country: None (occurrence: None)
  Receive Date: 20120423
  Receipt Date: 20120316
  Transmission Date: 20120825
  Serious: Yes (Hospitalization, Other)
  Sender: FDA-Public Use
  Company Number: US-BAXTER-2009BH011039

PATIENT
  Sex: Male
  Weight: 78.542 kg

DRUGS (13)
  1. HEPARIN SODIUM INJECTION [Suspect]
     Indication: CARDIAC PACEMAKER INSERTION
     Dosage: 7400 UNITS
     Route: 042
     Dates: start: 20080406, end: 20080406
  2. HEPARIN SODIUM INJECTION [Suspect]
     Dosage: 5000 UNITS
     Dates: start: 20080416, end: 20080416
  3. HEPARIN SODIUM INJECTION [Suspect]
     Dates: start: 20080407, end: 20080407
  4. HEPARIN SODIUM INJECTION [Suspect]
     Route: 042
     Dates: start: 20080414, end: 20080414
  5. HEPARIN SODIUM INJECTION [Suspect]
     Dosage: 50 UNITS
     Route: 042
     Dates: start: 20080507, end: 20080507
  6. NIASPAN [Concomitant]
     Route: 065
  7. HEPARIN SODIUM 1,000 UNITS IN DEXTROSE 5% [Suspect]
     Dates: start: 20080414
  8. HEPARIN SODIUM INJECTION [Suspect]
     Route: 042
     Dates: start: 20080407, end: 20080416
  9. HEPARIN SODIUM 1,000 UNITS IN DEXTROSE 5% [Suspect]
     Route: 042
     Dates: start: 20080407, end: 20080416
  10. METOPROLOL TARTRATE [Concomitant]
     Route: 065
  11. HEPARIN SODIUM INJECTION [Suspect]
     Dosage: 5000 UNITS
     Route: 042
     Dates: start: 20080414, end: 20080414
  12. HEPARIN SODIUM INJECTION [Suspect]
     Dosage: 7500 UNITS
     Route: 042
     Dates: start: 20080416, end: 20080416
  13. VYTORIN [Concomitant]
     Route: 065

REACTIONS (9)
  - LOSS OF CONSCIOUSNESS [None]
  - BLOOD PRESSURE DECREASED [None]
  - HEPARIN-INDUCED THROMBOCYTOPENIA [None]
  - GASTROINTESTINAL HAEMORRHAGE [None]
  - NODAL ARRHYTHMIA [None]
  - RENAL FAILURE [None]
  - PERICARDIAL EFFUSION [None]
  - THORACIC CAVITY DRAINAGE [None]
  - HYPERSENSITIVITY [None]
